FAERS Safety Report 9989163 (Version 9)
Quarter: 2015Q4

REPORT INFORMATION
  Report Type: Report from Study
  Country: US (occurrence: US)
  Receive Date: 20140310
  Receipt Date: 20151117
  Transmission Date: 20160305
  Serious: Yes (Hospitalization)
  Sender: FDA-Public Use
  Company Number: US-ROCHE-1341863

PATIENT
  Age: 1 Day
  Sex: Male
  Weight: 3.95 kg

DRUGS (12)
  1. OMALIZUMAB [Suspect]
     Active Substance: OMALIZUMAB
     Route: 064
     Dates: start: 20130624
  2. OMALIZUMAB [Suspect]
     Active Substance: OMALIZUMAB
     Route: 063
     Dates: start: 20140623
  3. OMALIZUMAB [Suspect]
     Active Substance: OMALIZUMAB
     Route: 063
     Dates: start: 20140224
  4. ZANTAC [Concomitant]
     Active Substance: RANITIDINE HYDROCHLORIDE
     Indication: IRRITABILITY
     Route: 048
     Dates: start: 20140129, end: 20140217
  5. OMALIZUMAB [Suspect]
     Active Substance: OMALIZUMAB
     Indication: PRODUCT USED FOR UNKNOWN INDICATION
     Route: 064
     Dates: start: 20130422
  6. OMALIZUMAB [Suspect]
     Active Substance: OMALIZUMAB
     Route: 063
     Dates: start: 20140411
  7. OMALIZUMAB [Suspect]
     Active Substance: OMALIZUMAB
     Route: 064
     Dates: start: 20130523
  8. OMALIZUMAB [Suspect]
     Active Substance: OMALIZUMAB
     Route: 064
     Dates: start: 20131122
  9. OMALIZUMAB [Suspect]
     Active Substance: OMALIZUMAB
     Route: 064
     Dates: start: 20131223
  10. OMALIZUMAB [Suspect]
     Active Substance: OMALIZUMAB
     Route: 063
     Dates: start: 20140130
  11. OMALIZUMAB [Suspect]
     Active Substance: OMALIZUMAB
     Route: 063
     Dates: start: 20140328
  12. OMALIZUMAB [Suspect]
     Active Substance: OMALIZUMAB
     Route: 063
     Dates: start: 20140522

REACTIONS (17)
  - Pulmonary congestion [Unknown]
  - Sinusitis [Unknown]
  - Viral diarrhoea [Unknown]
  - Gastrooesophageal reflux disease [Recovered/Resolved]
  - Ear infection [Unknown]
  - Otitis media [Unknown]
  - Cough [Unknown]
  - Viral infection [Unknown]
  - Exposure during breast feeding [Unknown]
  - Conjunctivitis [Unknown]
  - Upper respiratory tract infection [Unknown]
  - Sleep disorder [Unknown]
  - Pharyngitis [Unknown]
  - Foetal exposure during pregnancy [Unknown]
  - Ear pain [Unknown]
  - Jaundice neonatal [Recovered/Resolved]
  - Rash [Unknown]

NARRATIVE: CASE EVENT DATE: 20140117
